FAERS Safety Report 12831725 (Version 1)
Quarter: 2016Q4

REPORT INFORMATION
  Report Type: Spontaneous
  Country: IT (occurrence: IT)
  Receive Date: 20161010
  Receipt Date: 20161010
  Transmission Date: 20170207
  Serious: Yes (Hospitalization)
  Sender: FDA-Public Use
  Company Number: IT-ROCHE-1839951

PATIENT
  Age: 74 Year
  Sex: Female
  Weight: 85 kg

DRUGS (7)
  1. CIPRALEX [Concomitant]
     Active Substance: ESCITALOPRAM OXALATE
  2. TIKLID [Concomitant]
     Active Substance: TICLOPIDINE HYDROCHLORIDE
  3. SIMVASTATIN. [Concomitant]
     Active Substance: SIMVASTATIN
  4. CEFTRIAXONE. [Suspect]
     Active Substance: CEFTRIAXONE
     Indication: BRONCHITIS
     Route: 042
     Dates: start: 20161004, end: 20161004
  5. GLIBOMET [Concomitant]
     Active Substance: GLYBURIDE\METFORMIN HYDROCHLORIDE
  6. ESOPRAL [Concomitant]
     Active Substance: ESOMEPRAZOLE MAGNESIUM
  7. MICARDIS [Concomitant]
     Active Substance: TELMISARTAN

REACTIONS (3)
  - Generalised erythema [Recovering/Resolving]
  - Angioedema [Recovering/Resolving]
  - Respiratory arrest [Recovering/Resolving]

NARRATIVE: CASE EVENT DATE: 20161004
